FAERS Safety Report 8842310 (Version 1)
Quarter: 2012Q4

REPORT INFORMATION
  Report Type: Spontaneous
  Country: US (occurrence: None)
  Receive Date: 20121015
  Receipt Date: 20121015
  Transmission Date: 20130627
  Serious: Yes (Other)
  Sender: FDA-Public Use
  Company Number: None

PATIENT
  Age: 53 Year
  Sex: Female
  Weight: 56.7 kg

DRUGS (1)
  1. ARM AND HAMMER BAKING SODA [Suspect]
     Dosage: 2 times a day

REACTIONS (11)
  - Lip swelling [None]
  - Lip blister [None]
  - Skin exfoliation [None]
  - Haemorrhage [None]
  - Cheilitis [None]
  - Dry skin [None]
  - Lip dry [None]
  - Stomatitis [None]
  - Hypoaesthesia oral [None]
  - Oral discomfort [None]
  - Product formulation issue [None]
